FAERS Safety Report 14296636 (Version 3)
Quarter: 2018Q2

REPORT INFORMATION
  Report Type: Spontaneous
  Country: PT (occurrence: PT)
  Receive Date: 20171218
  Receipt Date: 20180426
  Transmission Date: 20180711
  Serious: Yes (Hospitalization, Other)
  Sender: FDA-Public Use
  Company Number: PT-AUROBINDO-AUR-APL-2017-46073

PATIENT
  Age: 39 Year
  Sex: Male

DRUGS (5)
  1. IOBITRIDOL [Concomitant]
     Active Substance: IOBITRIDOL
     Indication: PRODUCT USED FOR UNKNOWN INDICATION
     Dosage: UNK
  2. MEROPENEM. [Concomitant]
     Active Substance: MEROPENEM
     Indication: CHOLANGITIS
     Dosage: UNK
     Route: 065
  3. PROPOFOL. [Suspect]
     Active Substance: PROPOFOL
     Indication: PRODUCT USED FOR UNKNOWN INDICATION
     Dosage: UNK
     Route: 065
  4. CEFTRIAXONE. [Concomitant]
     Active Substance: CEFTRIAXONE
     Indication: CHOLANGITIS ACUTE
     Dosage: UNK
     Route: 065
  5. CIPROFLOXACIN. [Suspect]
     Active Substance: CIPROFLOXACIN
     Indication: CHOLANGITIS
     Dosage: UNK
     Route: 065

REACTIONS (6)
  - Concomitant disease aggravated [Recovering/Resolving]
  - Cholelithiasis [Recovering/Resolving]
  - Hepatitis toxic [Recovered/Resolved]
  - Off label use [Recovered/Resolved]
  - Jaundice [Recovering/Resolving]
  - Toxicity to various agents [Unknown]
